FAERS Safety Report 6129675-6 (Version None)
Quarter: 2009Q1

REPORT INFORMATION
  Report Type: 
  Country: None (occurrence: None)
  Receive Date: 20090323
  Receipt Date: 20090323
  Transmission Date: 20090719
  Serious: Yes (Hospitalization)
  Sender: FDA-Public Use
  Company Number: None

PATIENT
  Age: 21 Year
  Sex: Female
  Weight: 52.1637 kg

DRUGS (1)
  1. REGLAN [Suspect]
     Indication: GASTROINTESTINAL PAIN
     Dosage: ONCE 30 MIN BEFORE MEAL PO
     Route: 048
     Dates: start: 20020424, end: 20031018

REACTIONS (3)
  - ANXIETY [None]
  - NERVOUS SYSTEM DISORDER [None]
  - PANIC ATTACK [None]
